FAERS Safety Report 8791604 (Version 1)
Quarter: 2012Q4

REPORT INFORMATION
  Report Type: 
  Country: US (occurrence: US)
  Receive Date: 20120918
  Receipt Date: 20120918
  Transmission Date: 20130627
  Serious: Yes (Hospitalization)
  Sender: FDA-Public Use
  Company Number: PHHY2012US079934

PATIENT
  Age: 16 Year
  Sex: Female

DRUGS (4)
  1. FLUOXETINE [Suspect]
     Dosage: 10 mg daily
     Route: 048
  2. FLUOXETINE [Suspect]
     Dosage: 15 mg daily
     Route: 048
  3. QUETIAPINE [Suspect]
     Dosage: 100 mg daily
     Route: 048
  4. ZIPRASIDONE [Suspect]
     Dosage: 60 mg, BID
     Route: 048

REACTIONS (7)
  - Culture urine positive [Unknown]
  - White blood cell count increased [Unknown]
  - Tenderness [Recovered/Resolved]
  - Galactorrhoea [Recovered/Resolved]
  - Breast pain [Recovered/Resolved]
  - Breast enlargement [Recovered/Resolved]
  - Breast discharge [Recovered/Resolved]
